FAERS Safety Report 7397490-1 (Version None)
Quarter: 2011Q2

REPORT INFORMATION
  Report Type: 
  Country: None (occurrence: None)
  Receive Date: 20110406
  Receipt Date: 20110323
  Transmission Date: 20111010
  Serious: Yes (Disabling)
  Sender: FDA-Public Use
  Company Number: PHHY2011GB23547

PATIENT
  Sex: Female

DRUGS (17)
  1. VENLAFAXINE [Suspect]
     Indication: DEPRESSION
     Dosage: UNK
     Route: 048
     Dates: start: 20090901, end: 20110301
  2. GLANDOSANE [Concomitant]
     Dosage: UNK
     Route: 048
  3. MOMETASONE FUROATE [Concomitant]
  4. SALBUTAMOL [Concomitant]
  5. CODEINE [Concomitant]
  6. NITROFURANTOIN [Concomitant]
  7. XYLOMETAZOLINE [Concomitant]
  8. SYMBICORT [Concomitant]
  9. DOCUSATE [Concomitant]
     Dosage: UNK
  10. MACROGOL [Concomitant]
  11. PREGABALIN [Concomitant]
  12. CYCLIZINE [Concomitant]
     Dosage: UNK
  13. MIRTAZAPINE [Concomitant]
     Dosage: 30 MG, UNK
  14. HYPROMELLOSE [Concomitant]
  15. LANSOPRAZOLE [Concomitant]
  16. SOLIFENACIN [Concomitant]
  17. INFUMORPH [Concomitant]

REACTIONS (1)
  - MEDICATION RESIDUE [None]
